FAERS Safety Report 7619256-7 (Version None)
Quarter: 2011Q3

REPORT INFORMATION
  Report Type: 
  Country: None (occurrence: None)
  Receive Date: 20110718
  Receipt Date: 20110707
  Transmission Date: 20111222
  Serious: Yes (Hospitalization, Other)
  Sender: FDA-Public Use
  Company Number: US-ASTRAZENECA-2011SE22029

PATIENT
  Age: 53 Year
  Sex: Female
  Weight: 69.4 kg

DRUGS (14)
  1. VIMPAT [Concomitant]
  2. NEXIUM [Concomitant]
  3. HYDROXYZINE HCL [Concomitant]
  4. ZINC [Concomitant]
  5. FOLIC ACID [Concomitant]
  6. SEROQUEL [Suspect]
     Indication: SLEEP DISORDER
     Route: 048
     Dates: start: 19930101
  7. SIMVASTATIN [Concomitant]
  8. FUROSEMIDE [Concomitant]
  9. DIVALPROEX SODIUM [Concomitant]
  10. EFFEXOR [Concomitant]
  11. CLONAZEPAM [Concomitant]
  12. SEROQUEL [Suspect]
     Indication: BIPOLAR DISORDER
     Route: 048
     Dates: start: 19930101
  13. ATENOLOL [Concomitant]
  14. ZONISANIDE [Concomitant]

REACTIONS (12)
  - CLAVICLE FRACTURE [None]
  - UPPER LIMB FRACTURE [None]
  - LIGAMENT RUPTURE [None]
  - CORONARY ARTERIAL STENT INSERTION [None]
  - GASTRIC ULCER [None]
  - MYOCARDIAL INFARCTION [None]
  - EPILEPSY [None]
  - FALL [None]
  - TENDON RUPTURE [None]
  - GASTRIC BYPASS [None]
  - VOMITING [None]
  - INCORRECT DOSE ADMINISTERED [None]
